FAERS Safety Report 10275581 (Version 2)
Quarter: 2014Q3

REPORT INFORMATION
  Report Type: Spontaneous
  Country: JP (occurrence: JP)
  Receive Date: 20140703
  Receipt Date: 20140806
  Transmission Date: 20150326
  Serious: Yes (Hospitalization)
  Sender: FDA-Public Use
  Company Number: JP-JNJFOC-20140700274

PATIENT
  Age: 74 Year
  Sex: Male

DRUGS (8)
  1. XARELTO [Suspect]
     Active Substance: RIVAROXABAN
     Indication: CEREBROVASCULAR ACCIDENT PROPHYLAXIS
     Route: 048
     Dates: start: 20130614, end: 20140512
  2. ALEVIATIN [Suspect]
     Active Substance: PHENYTOIN SODIUM
     Indication: EPILEPSY
     Route: 048
     Dates: start: 20120321
  3. RENIVACE [Concomitant]
     Active Substance: ENALAPRIL
     Indication: HYPERTENSION
     Route: 048
     Dates: start: 201012
  4. PURSENNID [Concomitant]
     Active Substance: SENNOSIDES A AND B CALCIUM
     Indication: CONSTIPATION
     Route: 048
     Dates: start: 201012
  5. ALEVIATIN [Suspect]
     Active Substance: PHENYTOIN SODIUM
     Indication: EPILEPSY
     Route: 048
  6. MAGMITT [Concomitant]
     Active Substance: MAGNESIUM OXIDE
     Indication: CONSTIPATION
     Route: 048
     Dates: start: 201012
  7. FLUITRAN [Concomitant]
     Active Substance: TRICHLORMETHIAZIDE
     Indication: HYPERTENSION
     Route: 048
     Dates: start: 201012
  8. CRESTOR [Concomitant]
     Active Substance: ROSUVASTATIN CALCIUM
     Indication: DYSLIPIDAEMIA
     Route: 048
     Dates: start: 201012

REACTIONS (1)
  - Embolic cerebral infarction [Recovering/Resolving]

NARRATIVE: CASE EVENT DATE: 20140512
